FAERS Safety Report 15194836 (Version 2)
Quarter: 2018Q4

REPORT INFORMATION
  Report Type: Spontaneous
  Country: US (occurrence: US)
  Receive Date: 20180725
  Receipt Date: 20181009
  Transmission Date: 20190204
  Serious: No
  Sender: FDA-Public Use
  Company Number: US-GLAXOSMITHKLINE-US2018129589

PATIENT
  Age: 47 Year
  Sex: Female

DRUGS (1)
  1. NUCALA [Suspect]
     Active Substance: MEPOLIZUMAB
     Indication: EOSINOPHILIC GRANULOMATOSIS WITH POLYANGIITIS
     Dosage: 300 MG/ML, CYC
     Dates: start: 2015

REACTIONS (3)
  - Road traffic accident [Recovering/Resolving]
  - Memory impairment [Recovering/Resolving]
  - Concussion [Recovering/Resolving]

NARRATIVE: CASE EVENT DATE: 20180505
